FAERS Safety Report 8563319-9 (Version None)
Quarter: 2012Q3

REPORT INFORMATION
  Report Type: 
  Country: None (occurrence: None)
  Receive Date: 20120802
  Receipt Date: 20120727
  Transmission Date: 20120928
  Serious: No
  Sender: FDA-Public Use
  Company Number: US-AMGEN-USASP2012047248

PATIENT
  Age: 15 Year
  Sex: Female
  Weight: 57.6 kg

DRUGS (1)
  1. ENBREL [Suspect]
     Indication: JUVENILE ARTHRITIS
     Dosage: 44 MG, QWK

REACTIONS (1)
  - PLATELET COUNT DECREASED [None]
